FAERS Safety Report 12979460 (Version 2)
Quarter: 2016Q4

REPORT INFORMATION
  Report Type: Spontaneous
  Country: FI (occurrence: FI)
  Receive Date: 20161128
  Receipt Date: 20161215
  Transmission Date: 20170207
  Serious: Yes (Death, Hospitalization)
  Sender: FDA-Public Use
  Company Number: FI-PFIZER INC-2016532043

PATIENT
  Age: 57 Year
  Sex: Female

DRUGS (3)
  1. FRAGMIN [Suspect]
     Active Substance: DALTEPARIN SODIUM
     Dosage: 0.2 ML SYRINGE (2500 IU)
     Route: 058
     Dates: start: 20161028, end: 20161030
  2. FRAGMIN [Suspect]
     Active Substance: DALTEPARIN SODIUM
     Indication: PULMONARY EMBOLISM
     Dosage: 12500 IU DAILY
     Dates: start: 20161027, end: 20161027
  3. FRAGMIN [Suspect]
     Active Substance: DALTEPARIN SODIUM
     Dosage: 12500 IU DAILY
     Dates: start: 20161031, end: 20161103

REACTIONS (3)
  - Neoplasm progression [Fatal]
  - Dyspnoea [Unknown]
  - Drug prescribing error [Unknown]

NARRATIVE: CASE EVENT DATE: 201610
